FAERS Safety Report 4269592-X (Version None)
Quarter: 2004Q1

REPORT INFORMATION
  Report Type: 
  Country: None (occurrence: None)
  Receive Date: 20040112
  Receipt Date: 20031222
  Transmission Date: 20041129
  Serious: Yes (Other)
  Sender: FDA-Public Use
  Company Number: 817

PATIENT
  Age: 35 Year
  Sex: Female

DRUGS (2)
  1. AMNESTEEM [Suspect]
     Dosage: ORAL
     Route: 048
  2. SOTRET [Suspect]
     Dosage: ORAL
     Route: 048

REACTIONS (4)
  - BENIGN HEPATIC NEOPLASM [None]
  - INFECTION IN AN IMMUNOCOMPROMISED HOST [None]
  - PYREXIA [None]
  - SPLEEN DISORDER [None]
